FAERS Safety Report 21087476 (Version 5)
Quarter: 2023Q1

REPORT INFORMATION
  Report Type: Spontaneous
  Country: IT (occurrence: IT)
  Receive Date: 20220715
  Receipt Date: 20230210
  Transmission Date: 20230417
  Serious: Yes (Other)
  Sender: FDA-Public Use
  Company Number: IT-PFIZER INC-PV202200010263

PATIENT
  Age: 41 Year
  Sex: Female

DRUGS (16)
  1. ASPIRIN [Suspect]
     Active Substance: ASPIRIN
     Indication: Arterial thrombosis
     Dosage: UNK
     Route: 065
  2. ASPIRIN [Suspect]
     Active Substance: ASPIRIN
     Indication: Thrombosis prophylaxis
  3. ASPIRIN [Suspect]
     Active Substance: ASPIRIN
     Indication: Hepatic artery thrombosis
  4. TRASTUZUMAB [Suspect]
     Active Substance: TRASTUZUMAB
     Indication: Hepatic cancer
     Dosage: UNK
     Route: 065
  5. TRASTUZUMAB [Suspect]
     Active Substance: TRASTUZUMAB
     Indication: Breast cancer
  6. FLUOROURACIL [Suspect]
     Active Substance: FLUOROURACIL
     Indication: Hepatic cancer
     Dosage: UNK
     Route: 065
  7. BEVACIZUMAB [Suspect]
     Active Substance: BEVACIZUMAB
     Indication: Metastases to liver
     Dosage: UNK
     Route: 065
  8. BEVACIZUMAB [Suspect]
     Active Substance: BEVACIZUMAB
     Indication: Hepatic cancer
  9. CLOPIDOGREL [Suspect]
     Active Substance: CLOPIDOGREL BISULFATE
     Indication: Hepatic artery thrombosis
     Dosage: UNK (START DATE 2020)
     Route: 065
  10. CLOPIDOGREL [Suspect]
     Active Substance: CLOPIDOGREL BISULFATE
     Indication: Thrombosis prophylaxis
  11. CLOPIDOGREL [Suspect]
     Active Substance: CLOPIDOGREL BISULFATE
     Indication: Arterial thrombosis
  12. ENOXAPARIN [Concomitant]
     Active Substance: ENOXAPARIN
     Indication: Arterial thrombosis
     Dosage: 200IU/KILOGRAM,QD(100 IU/KG,TWICE A DAY)START:2020
     Route: 065
  13. UROKINASE [Concomitant]
     Active Substance: UROKINASE
     Indication: Arterial thrombosis
     Dosage: UNK (START DATE 2020)
     Route: 065
  14. FLUOROURACIL [Concomitant]
     Active Substance: FLUOROURACIL
     Indication: Metastases to liver
     Dosage: UNK
     Route: 065
  15. FLUOROURACIL [Concomitant]
     Active Substance: FLUOROURACIL
     Indication: Breast cancer
  16. ASPIRIN\CLOPIDOGREL [Concomitant]
     Active Substance: ASPIRIN\CLOPIDOGREL
     Indication: Thrombosis prophylaxis
     Dosage: UNK (START DATE 2020)
     Route: 065

REACTIONS (8)
  - Deep vein thrombosis [Recovered/Resolved]
  - Therapeutic embolisation [Unknown]
  - Hepatic cancer [Unknown]
  - Hepatic artery thrombosis [Unknown]
  - Device related thrombosis [Not Recovered/Not Resolved]
  - Jugular vein thrombosis [Recovering/Resolving]
  - Drug ineffective [Unknown]
  - Off label use [Unknown]

NARRATIVE: CASE EVENT DATE: 20170101
